FAERS Safety Report 12774178 (Version 2)
Quarter: 2016Q3

REPORT INFORMATION
  Report Type: Spontaneous
  Country: US (occurrence: US)
  Receive Date: 20160923
  Receipt Date: 20160926
  Transmission Date: 20161109
  Serious: Yes (Other)
  Sender: FDA-Public Use
  Company Number: US-TEVA-694758ACC

PATIENT
  Sex: Female
  Weight: 99.88 kg

DRUGS (1)
  1. PARAGARD T 380A [Suspect]
     Active Substance: COPPER
     Indication: CONTRACEPTION
     Dates: start: 20150812, end: 20160809

REACTIONS (4)
  - Exposure during pregnancy [Unknown]
  - Exposure during breast feeding [Unknown]
  - Pregnancy on contraceptive [Unknown]
  - Nausea [Unknown]
